FAERS Safety Report 9391798 (Version 2)
Quarter: 2013Q3

REPORT INFORMATION
  Report Type: Spontaneous
  Country: NZ (occurrence: NZ)
  Receive Date: 20130709
  Receipt Date: 20130906
  Transmission Date: 20140515
  Serious: Yes (Life-Threatening, Hospitalization, Other)
  Sender: FDA-Public Use
  Company Number: NZ-B.I. PHARMACEUTICALS,INC./RIDGEFIELD-2013-AU-00811AU

PATIENT
  Age: 88 Year
  Sex: Male

DRUGS (6)
  1. PRADAXA [Suspect]
     Indication: ATRIAL FIBRILLATION
     Dosage: 220 MG
     Dates: start: 20130411, end: 20130602
  2. AMLODIPINE [Concomitant]
     Dosage: 5 MG
     Dates: start: 20130409, end: 20130602
  3. BENDROFLUAZIDE [Concomitant]
     Dosage: 5 MG
  4. BENDROFLUAZIDE [Concomitant]
     Dates: end: 20130602
  5. ATENOLOL [Concomitant]
     Dosage: 100 MG
  6. ATENOLOL [Concomitant]

REACTIONS (6)
  - Renal haematoma [Recovered/Resolved]
  - Cardiac failure congestive [Recovered/Resolved]
  - Renal failure acute [Recovered/Resolved]
  - Renal impairment [Unknown]
  - Fluid overload [Recovered/Resolved]
  - Renal cyst [Unknown]
